FAERS Safety Report 11870206 (Version 1)
Quarter: 2015Q4

REPORT INFORMATION
  Report Type: Spontaneous
  Country: US (occurrence: None)
  Receive Date: 20151224
  Receipt Date: 20151224
  Transmission Date: 20160305
  Serious: Yes (Hospitalization)
  Sender: FDA-Public Use
  Company Number: None

PATIENT
  Age: 60 Year
  Sex: Female

DRUGS (3)
  1. LISINOPRIL AND HYDROCHLOROTHIAZIDE [Suspect]
     Active Substance: HYDROCHLOROTHIAZIDE\LISINOPRIL
     Indication: HYPERTENSION
     Dosage: 25 MG/25 MG DAILY PO
     Route: 048
     Dates: start: 20150817, end: 20150817
  2. NAPROXEN. [Suspect]
     Active Substance: NAPROXEN
     Route: 048
  3. AMLODIPINE [Concomitant]
     Active Substance: AMLODIPINE BESYLATE

REACTIONS (12)
  - Nausea [None]
  - Malaise [None]
  - Sepsis [None]
  - Diverticulum [None]
  - Hypovolaemia [None]
  - Hypotension [None]
  - Abdominal pain [None]
  - Asthenia [None]
  - Acute kidney injury [None]
  - Vomiting [None]
  - Fatigue [None]
  - Dizziness [None]

NARRATIVE: CASE EVENT DATE: 20150817
